FAERS Safety Report 9413326 (Version 1)
Quarter: 2013Q2

REPORT INFORMATION
  Report Type: Spontaneous
  Country: US (occurrence: None)
  Receive Date: 20130611
  Receipt Date: 20130611
  Transmission Date: 20140414
  Serious: Yes (Other)
  Sender: FDA-Public Use
  Company Number: ONY-2013-004

PATIENT
  Age: 2 Hour
  Sex: Female
  Weight: 1.46 kg

DRUGS (1)
  1. INFASURF [Suspect]
     Route: 039

REACTIONS (3)
  - Bradycardia [None]
  - Oxygen saturation decreased [None]
  - Endotracheal intubation complication [None]
